FAERS Safety Report 19139669 (Version 1)
Quarter: 2021Q2

REPORT INFORMATION
  Report Type: Spontaneous
  Country: US (occurrence: US)
  Receive Date: 20210415
  Receipt Date: 20210415
  Transmission Date: 20210717
  Serious: No
  Sender: FDA-Public Use
  Company Number: US-UNITED THERAPEUTICS-UNT-2021-006513

PATIENT
  Age: 58 Year
  Sex: Female

DRUGS (2)
  1. REMODULIN [Suspect]
     Active Substance: TREPROSTINIL
     Indication: PULMONARY ARTERIAL HYPERTENSION
     Dosage: UNK UNK, CONTINUING
     Route: 058
     Dates: start: 20201113
  2. REMODULIN [Suspect]
     Active Substance: TREPROSTINIL
     Dosage: 0.04562 ?G/KG, CONTINUING
     Route: 058

REACTIONS (5)
  - Feeling abnormal [Unknown]
  - Product administration interrupted [Recovered/Resolved]
  - Device use issue [Recovered/Resolved]
  - Cold sweat [Unknown]
  - Device malfunction [Recovered/Resolved]

NARRATIVE: CASE EVENT DATE: 202104
